FAERS Safety Report 12571027 (Version 5)
Quarter: 2018Q1

REPORT INFORMATION
  Report Type: Report from Study
  Country: JP (occurrence: JP)
  Receive Date: 20160719
  Receipt Date: 20180104
  Transmission Date: 20180508
  Serious: Yes (Other)
  Sender: FDA-Public Use
  Company Number: JP-INCYTE CORPORATION-2016IN004175

PATIENT

DRUGS (3)
  1. JAKAVI [Suspect]
     Active Substance: RUXOLITINIB
     Indication: MYELOFIBROSIS
     Dosage: 15 MG, BID
     Route: 048
     Dates: start: 20141118, end: 20141212
  2. JAKAVI [Suspect]
     Active Substance: RUXOLITINIB
     Dosage: 15 MG, BID
     Route: 048
     Dates: start: 20150108, end: 20150126
  3. JAKAVI [Suspect]
     Active Substance: RUXOLITINIB
     Dosage: 10 MG, BID
     Route: 048
     Dates: start: 20150127, end: 20150202

REACTIONS (7)
  - Platelet count decreased [Unknown]
  - Haemoglobin decreased [Unknown]
  - Faeces discoloured [Unknown]
  - Dementia [Unknown]
  - Pyrexia [Recovering/Resolving]
  - Sepsis [Recovered/Resolved]
  - Myelofibrosis [Unknown]

NARRATIVE: CASE EVENT DATE: 20150204
